FAERS Safety Report 21935167 (Version 2)
Quarter: 2023Q1

REPORT INFORMATION
  Report Type: Report from Study
  Country: BE (occurrence: BE)
  Receive Date: 20230201
  Receipt Date: 20230207
  Transmission Date: 20230417
  Serious: Yes (Death, Life-Threatening, Hospitalization, Other)
  Sender: FDA-Public Use
  Company Number: BE-ASTELLAS-2022US045172

PATIENT
  Age: 71 Year
  Sex: Male
  Weight: 120 kg

DRUGS (7)
  1. ENFORTUMAB VEDOTIN [Suspect]
     Active Substance: ENFORTUMAB VEDOTIN
     Indication: Transitional cell carcinoma
     Dosage: 1.25 MG/KG, CYCLIC (CAPPED 125MG 1,8,15 Q28)
     Route: 042
     Dates: start: 20221123
  2. MIANSERIN HYDROCHLORIDE [Concomitant]
     Active Substance: MIANSERIN HYDROCHLORIDE
     Indication: Product used for unknown indication
     Dosage: 10 MG, ONCE DAILY AT 8:00 PM BEFORE GOING TO BED
     Route: 048
  3. METFORMIN HYDROCHLORIDE [Concomitant]
     Active Substance: METFORMIN HYDROCHLORIDE
     Indication: Product used for unknown indication
     Dosage: 500 MG, ONCE DAILY AT 8:00 AM
     Route: 048
  4. CHOLECALCIFEROL [Concomitant]
     Active Substance: CHOLECALCIFEROL
     Indication: Product used for unknown indication
     Dosage: 25,000 IU/1ML, ONE DOSE EVERY 2 WEEKS, MONDAY 8 AM
     Route: 048
  5. Befact [Concomitant]
     Indication: Hypoaesthesia
     Dosage: 1 TABLET, ONCE DAILY AT 8 AM
     Route: 048
  6. IRBESARTAN [Concomitant]
     Active Substance: IRBESARTAN
     Indication: Product used for unknown indication
     Dosage: 150 MG, ONCE DAILY AT 8 AM
     Route: 048
  7. ROSUVASTATIN [Concomitant]
     Active Substance: ROSUVASTATIN
     Indication: Product used for unknown indication
     Dosage: 10 MG, ONCE DAILY AT 8 PM BEFORE GOING TO SLEEP
     Route: 048

REACTIONS (7)
  - Rash [Fatal]
  - Hyperglycaemia [Fatal]
  - Septic shock [Fatal]
  - Multiple organ dysfunction syndrome [Fatal]
  - Neutropenia [Fatal]
  - Acute kidney injury [Fatal]
  - Ketoacidosis [Fatal]

NARRATIVE: CASE EVENT DATE: 20221207
